FAERS Safety Report 8296207-6 (Version None)
Quarter: 2012Q2

REPORT INFORMATION
  Report Type: 
  Country: None (occurrence: None)
  Receive Date: 20120418
  Receipt Date: 20120411
  Transmission Date: 20120825
  Serious: Yes (Other)
  Sender: FDA-Public Use
  Company Number: US-PURDUE-USA-2012-0085311

PATIENT
  Sex: Female
  Weight: 70.295 kg

DRUGS (5)
  1. GENGRAF [Suspect]
     Dosage: UNK
     Dates: start: 20111101
  2. GENGRAF [Suspect]
     Indication: APLASTIC ANAEMIA
     Dosage: 175 MG, DAILY
     Dates: start: 20090801
  3. FENTANYL [Suspect]
     Indication: APLASTIC ANAEMIA
     Dosage: UNK
     Route: 062
  4. DILAUDID [Suspect]
     Indication: APLASTIC ANAEMIA
     Dosage: 2 MG, Q4H
  5. BLOOD AND RELATED PRODUCTS [Suspect]
     Indication: APLASTIC ANAEMIA

REACTIONS (11)
  - VOMITING [None]
  - COLONIC POLYP [None]
  - TREMOR [None]
  - ABDOMINAL PAIN UPPER [None]
  - IRON OVERLOAD [None]
  - PRURITUS [None]
  - SLEEP APNOEA SYNDROME [None]
  - NAUSEA [None]
  - GASTRITIS [None]
  - OBSTRUCTIVE AIRWAYS DISORDER [None]
  - GASTRIC POLYPS [None]
